FAERS Safety Report 7075176-0 (Version None)
Quarter: 2010Q4

REPORT INFORMATION
  Report Type: 
  Country: None (occurrence: None)
  Receive Date: 20101029
  Receipt Date: 20100602
  Transmission Date: 20110411
  Serious: No
  Sender: FDA-Public Use
  Company Number: US-WYE-H15649810

PATIENT
  Age: 84 Year
  Sex: Female
  Weight: 86.26 kg

DRUGS (1)
  1. ADVIL PM [Suspect]
     Indication: INSOMNIA
     Dosage: 1 CAPLET AS NEEDED
     Route: 048
     Dates: start: 20100101, end: 20100416

REACTIONS (1)
  - ERYTHEMA [None]
